FAERS Safety Report 7589862-7 (Version None)
Quarter: 2011Q3

REPORT INFORMATION
  Report Type: 
  Country: None (occurrence: None)
  Receive Date: 20110705
  Receipt Date: 20110701
  Transmission Date: 20111222
  Serious: Yes (Life-Threatening, Hospitalization)
  Sender: FDA-Public Use
  Company Number: GB-TEVA-288913ISR

PATIENT
  Age: 59 Year
  Sex: Female
  Weight: 58.2 kg

DRUGS (1)
  1. TRIMETHOPRIM [Suspect]
     Indication: URINARY TRACT INFECTION
     Route: 048
     Dates: start: 20110611, end: 20110613

REACTIONS (1)
  - PHARYNGEAL OEDEMA [None]
